FAERS Safety Report 25906360 (Version 1)
Quarter: 2025Q4

REPORT INFORMATION
  Report Type: Spontaneous
  Country: US (occurrence: None)
  Receive Date: 20251009
  Receipt Date: 20251009
  Transmission Date: 20260118
  Serious: No
  Sender: FDA-CTU
  Company Number: None

PATIENT
  Age: 75 Year
  Sex: Female
  Weight: 74.25 kg

DRUGS (2)
  1. VYVGART HYTRULO [Suspect]
     Active Substance: EFGARTIGIMOD ALFA\HYALURONIDASE-QVFC
     Indication: Chronic inflammatory demyelinating polyradiculoneuropathy
     Dosage: OTHER FREQUENCY : WEEKLY;?
     Dates: start: 20250925
  2. JARDIANCE [Suspect]
     Active Substance: EMPAGLIFLOZIN

REACTIONS (6)
  - Rash [None]
  - Multiple allergies [None]
  - Diarrhoea [None]
  - Gastrointestinal sounds abnormal [None]
  - Pollakiuria [None]
  - Micturition urgency [None]

NARRATIVE: CASE EVENT DATE: 20251009
